FAERS Safety Report 9592434 (Version 1)
Quarter: 2013Q4

REPORT INFORMATION
  Report Type: Spontaneous
  Country: US (occurrence: US)
  Receive Date: 20131004
  Receipt Date: 20131004
  Transmission Date: 20140711
  Serious: No
  Sender: FDA-Public Use
  Company Number: US-009507513-1309USA008732

PATIENT
  Sex: 0
  Weight: 92.97 kg

DRUGS (1)
  1. IMPLANON [Suspect]
     Dosage: 68 MG/ONE ROD EVERY THREE YEARS
     Route: 059
     Dates: start: 20111207

REACTIONS (3)
  - Device breakage [Unknown]
  - Device kink [Unknown]
  - No adverse event [Unknown]
